FAERS Safety Report 9677936 (Version 1)
Quarter: 2013Q4

REPORT INFORMATION
  Report Type: Spontaneous
  Country: US (occurrence: US)
  Receive Date: 20131108
  Receipt Date: 20131108
  Transmission Date: 20140711
  Serious: Yes (Other)
  Sender: FDA-Public Use
  Company Number: US-FRI-1000050812

PATIENT
  Sex: Male

DRUGS (1)
  1. VIIBRYD [Suspect]
     Dosage: 40 MG
     Route: 048

REACTIONS (1)
  - Renal failure [Unknown]
